FAERS Safety Report 5366055-5 (Version None)
Quarter: 2007Q2

REPORT INFORMATION
  Report Type: 
  Country: None (occurrence: None)
  Receive Date: 20070619
  Receipt Date: 20070611
  Transmission Date: 20071010
  Serious: Yes (Death)
  Sender: FDA-Public Use
  Company Number: 163-21880-07050310

PATIENT
  Age: 56 Year
  Sex: Male

DRUGS (1)
  1. REVLIMID [Suspect]
     Indication: AMYLOIDOSIS
     Dosage: 5 MG, DAILY X 21 DAYS, OFF 1 WEEK + REPEAT, ORAL
     Route: 048
     Dates: start: 20070323, end: 20070425

REACTIONS (7)
  - AMYLOIDOSIS [None]
  - ASTHENIA [None]
  - DIARRHOEA [None]
  - DISEASE PROGRESSION [None]
  - GENERALISED OEDEMA [None]
  - HEADACHE [None]
  - VOMITING [None]
